FAERS Safety Report 8847721 (Version 2)
Quarter: 2012Q4

REPORT INFORMATION
  Report Type: Report from Study
  Country: FR (occurrence: FR)
  Receive Date: 20121018
  Receipt Date: 20121228
  Transmission Date: 20130627
  Serious: Yes (Hospitalization)
  Sender: FDA-Public Use
  Company Number: FR-BAXTER-2012BAX019398

PATIENT
  Age: 46 Year
  Sex: Female
  Weight: 67 kg

DRUGS (27)
  1. ENDOXAN 2000 MG, LYOPHILISAT POUR SOLUTION INJECTABLE [Suspect]
     Indication: NODULAR (FOLLICULAR) LYMPHOMA
     Route: 042
     Dates: start: 20120426
  2. DOXORUBICIN [Suspect]
     Indication: NODULAR (FOLLICULAR) LYMPHOMA
     Route: 042
     Dates: start: 20120426
  3. VINCRISTINE [Suspect]
     Indication: NODULAR (FOLLICULAR) LYMPHOMA
     Route: 042
     Dates: start: 20120426
  4. PREDNISONE [Suspect]
     Indication: NODULAR (FOLLICULAR) LYMPHOMA
     Route: 048
     Dates: start: 20120423, end: 20120425
  5. PREDNISONE [Suspect]
     Route: 048
     Dates: start: 20120430
  6. DEXCHLORPHENIRAMINE MALEATE [Concomitant]
     Indication: PREMEDICATION
     Route: 065
     Dates: start: 20120426, end: 20120426
  7. DEXCHLORPHENIRAMINE MALEATE [Concomitant]
     Route: 065
     Dates: start: 20120524, end: 20120524
  8. DEXCHLORPHENIRAMINE MALEATE [Concomitant]
     Route: 065
     Dates: start: 20120531, end: 20120531
  9. DEXCHLORPHENIRAMINE MALEATE [Concomitant]
     Route: 065
     Dates: start: 20120621, end: 20120621
  10. DEXCHLORPHENIRAMINE MALEATE [Concomitant]
     Route: 065
     Dates: start: 20120823, end: 20120823
  11. ONDANSETRON [Concomitant]
     Indication: PREMEDICATION
     Route: 065
     Dates: start: 20120426, end: 20120426
  12. ONDANSETRON [Concomitant]
     Route: 065
     Dates: start: 20120531, end: 20120531
  13. ALLOPURINOL [Concomitant]
     Indication: HYPERURICEMIA
     Route: 065
     Dates: start: 20120425, end: 20120525
  14. KARDEGIC [Concomitant]
     Indication: ANEURYSM
     Route: 065
     Dates: start: 20040630
  15. LOVENOX [Concomitant]
     Indication: LIGAMENT SPRAIN
     Route: 065
     Dates: start: 20120511, end: 20120611
  16. LORAMYL [Concomitant]
     Indication: CANDIDIASIS
     Route: 065
     Dates: start: 20120523, end: 20120530
  17. SOLU-MEDROL [Concomitant]
     Indication: PREMEDICATION
     Route: 065
     Dates: start: 20120524, end: 20120524
  18. CONTRAMAL [Concomitant]
     Indication: PREMEDICATION
     Route: 065
     Dates: start: 20120524, end: 20120524
  19. DIMETICONE [Concomitant]
     Indication: DRUG USE FOR UNKNOWN INDICATION
     Route: 065
     Dates: start: 20120523
  20. PARACETAMOL [Concomitant]
     Indication: PREMEDICATION
     Route: 065
     Dates: start: 20120426, end: 20120426
  21. PARACETAMOL [Concomitant]
     Indication: FEBRILE NEUTROPENIA
     Route: 065
     Dates: start: 20120506, end: 20120520
  22. PARACETAMOL [Concomitant]
     Indication: SMALL BOWEL OBSTRUCTION
     Route: 065
     Dates: start: 20120523, end: 20120602
  23. PARACETAMOL [Concomitant]
     Route: 065
     Dates: start: 20120621, end: 20120621
  24. PARACETAMOL [Concomitant]
     Route: 065
     Dates: start: 20120823, end: 20120823
  25. ZOPHREN [Concomitant]
     Indication: NAUSEA
     Route: 065
     Dates: start: 20120427, end: 20120429
  26. ZOPHREN [Concomitant]
     Route: 065
     Dates: start: 20120601, end: 20120603
  27. ZOPHREN [Concomitant]
     Route: 065
     Dates: start: 20120622, end: 20120624

REACTIONS (4)
  - Anaemia [Recovered/Resolved]
  - Febrile neutropenia [Recovered/Resolved]
  - Device related infection [Recovered/Resolved]
  - Small intestinal obstruction [Recovered/Resolved]
